FAERS Safety Report 8282802-7 (Version None)
Quarter: 2012Q2

REPORT INFORMATION
  Report Type: 
  Country: None (occurrence: None)
  Receive Date: 20120413
  Receipt Date: 20120403
  Transmission Date: 20120825
  Serious: Yes (Other)
  Sender: FDA-Public Use
  Company Number: US-SANOFI-AVENTIS-2012SA023082

PATIENT
  Sex: Male
  Weight: 88.18 kg

DRUGS (2)
  1. LANTUS [Suspect]
     Indication: DIABETES MELLITUS
     Dosage: DOSE:25 UNIT(S)
     Route: 058
  2. NOVOLIN 70/30 [Suspect]
     Indication: DIABETES MELLITUS
     Route: 065

REACTIONS (1)
  - WEIGHT DECREASED [None]
